FAERS Safety Report 8301565-X (Version None)
Quarter: 2012Q2

REPORT INFORMATION
  Report Type: 
  Country: None (occurrence: None)
  Receive Date: 20120420
  Receipt Date: 20120411
  Transmission Date: 20120825
  Serious: Yes (Hospitalization, Other)
  Sender: FDA-Public Use
  Company Number: CA-JNJFOC-20120113676

PATIENT
  Sex: Female

DRUGS (2)
  1. REMICADE [Suspect]
     Indication: CROHN'S DISEASE
     Route: 042
     Dates: start: 20111107, end: 20111107
  2. REMICADE [Suspect]
     Route: 042
     Dates: start: 20090528

REACTIONS (3)
  - COLECTOMY TOTAL [None]
  - ABDOMINAL ABSCESS [None]
  - FISTULA [None]
